FAERS Safety Report 7352391-X (Version None)
Quarter: 2011Q1

REPORT INFORMATION
  Report Type: 
  Country: None (occurrence: None)
  Receive Date: 20110315
  Receipt Date: 20100805
  Transmission Date: 20110831
  Serious: Yes (Hospitalization, Other)
  Sender: FDA-Public Use
  Company Number: US-BAYER-201016936NA

PATIENT
  Sex: Female
  Weight: 117.91 kg

DRUGS (10)
  1. COZAAR [Concomitant]
     Dosage: 100 MG, QD
     Route: 048
     Dates: start: 20071201
  2. ACIPHEX [Concomitant]
     Dosage: 20 MG, QD
     Route: 048
  3. YAZ [Suspect]
     Indication: PRODUCT USED FOR UNKNOWN INDICATION
     Dosage: UNK
     Route: 048
     Dates: start: 20070801, end: 20080301
  4. ALLEGRA [Concomitant]
     Dosage: 180 MG, QD
     Route: 048
  5. NEXIUM [Concomitant]
     Dosage: 40 MG, QD
     Route: 048
  6. YASMIN [Suspect]
     Indication: PRODUCT USED FOR UNKNOWN INDICATION
     Route: 048
  7. NORVASC [Concomitant]
     Dosage: 5 MG, QD
     Route: 048
     Dates: start: 20080201
  8. CRESTOR [Concomitant]
     Dosage: 10 MG, QD
     Route: 048
  9. OCELLA [Suspect]
     Indication: PRODUCT USED FOR UNKNOWN INDICATION
     Route: 048
  10. MOBIC [Concomitant]
     Dosage: 7.5 MG, QD
     Route: 048

REACTIONS (4)
  - PULMONARY EMBOLISM [None]
  - DEEP VEIN THROMBOSIS [None]
  - DYSPNOEA [None]
  - NAUSEA [None]
